FAERS Safety Report 4794364-7 (Version None)
Quarter: 2005Q4

REPORT INFORMATION
  Report Type: 
  Country: None (occurrence: None)
  Receive Date: 20051011
  Receipt Date: 20050616
  Transmission Date: 20060501
  Serious: Yes (Other)
  Sender: FDA-Public Use
  Company Number: PHBS2005TW08556

PATIENT
  Sex: Female

DRUGS (1)
  1. PARLODEL [Suspect]
     Indication: PITUITARY TUMOUR BENIGN
     Dosage: 0.125 MG, QD
     Route: 048
     Dates: start: 20040901, end: 20050616

REACTIONS (4)
  - ABORTION INDUCED [None]
  - ANTEPARTUM HAEMORRHAGE [None]
  - DRUG EXPOSURE DURING PREGNANCY [None]
  - FOETAL DISORDER [None]
